FAERS Safety Report 9862892 (Version 1)
Quarter: 2014Q1

REPORT INFORMATION
  Report Type: Spontaneous
  Country: US (occurrence: US)
  Receive Date: 20140203
  Receipt Date: 20140203
  Transmission Date: 20141002
  Serious: Yes (Death)
  Sender: FDA-Public Use
  Company Number: CHPA2014US001792

PATIENT
  Age: 47 Year
  Sex: Female

DRUGS (4)
  1. ACETAMINOPHEN (PARACETAMOL) [Suspect]
     Route: 048
  2. CLONAZEPAM [Suspect]
     Route: 048
  3. DIAZEPAM [Suspect]
     Route: 048
  4. BUTALBITAL W/CAFFEINE/PARACETAMOL [Suspect]
     Route: 048

REACTIONS (1)
  - Completed suicide [Fatal]
